FAERS Safety Report 8773182 (Version 1)
Quarter: 2012Q4

REPORT INFORMATION
  Report Type: 
  Country: US (occurrence: US)
  Receive Date: 20120907
  Receipt Date: 20120907
  Transmission Date: 20130627
  Serious: Yes (Other)
  Sender: FDA-Public Use
  Company Number: CHPA2012US019078

PATIENT
  Age: 80 Year
  Sex: Female

DRUGS (2)
  1. MAALOX MAX ANTACID+ANTIGAS [Suspect]
     Indication: DYSPEPSIA
     Dosage: 1 or 2 DF, PRN
     Route: 048
     Dates: start: 2010
  2. MAALOX ANTACID/ANTIGAS MAX LIQ UNKNOWN [Suspect]
     Indication: DYSPEPSIA
     Dosage: 1 or 2 TSP, PRN
     Route: 048
     Dates: start: 2010

REACTIONS (2)
  - Blood pressure increased [Recovered/Resolved]
  - Dyspepsia [Unknown]
